FAERS Safety Report 22335809 (Version 2)
Quarter: 2024Q2

REPORT INFORMATION
  Report Type: Report from Study
  Country: US (occurrence: US)
  Receive Date: 20230518
  Receipt Date: 20240401
  Transmission Date: 20240716
  Serious: Yes (Other)
  Sender: FDA-Public Use
  Company Number: US-ABBVIE-4769692

PATIENT
  Age: 71 Year
  Sex: Female

DRUGS (2)
  1. RINVOQ [Suspect]
     Active Substance: UPADACITINIB
     Indication: Rheumatoid arthritis
     Route: 048
  2. METHOTREXATE [Concomitant]
     Active Substance: METHOTREXATE
     Indication: Product used for unknown indication

REACTIONS (11)
  - Urinary tract disorder [Unknown]
  - Mobility decreased [Unknown]
  - COVID-19 [Unknown]
  - Urinary tract infection [Unknown]
  - Psoriasis [Unknown]
  - Dry eye [Unknown]
  - Sleep disorder [Unknown]
  - Alopecia [Unknown]
  - Eye disorder [Unknown]
  - Therapeutic product effect delayed [Unknown]
  - Multi-organ disorder [Unknown]

NARRATIVE: CASE EVENT DATE: 20210101
